FAERS Safety Report 7624744-3 (Version None)
Quarter: 2011Q3

REPORT INFORMATION
  Report Type: 
  Country: None (occurrence: None)
  Receive Date: 20110720
  Receipt Date: 20081024
  Transmission Date: 20111222
  Serious: Yes (Other)
  Sender: FDA-Public Use
  Company Number: US-BAYER-200834737NA

PATIENT
  Age: 38 Year
  Sex: Female
  Weight: 132 kg

DRUGS (7)
  1. PLAQUENIL [Concomitant]
  2. TOPAMAX [Concomitant]
  3. CLONIDINE [Concomitant]
  4. MAGNEVIST [Suspect]
     Indication: NUCLEAR MAGNETIC RESONANCE IMAGING
     Dates: start: 20050701, end: 20050715
  5. DARVOCET [Concomitant]
  6. MAGNEVIST [Suspect]
     Indication: ANGIOGRAM
     Dosage: UNK, ONCE
     Dates: start: 20050124, end: 20050124
  7. HYDROCHLOROTHIAZIDE [Concomitant]

REACTIONS (15)
  - ARTHRALGIA [None]
  - DRY SKIN [None]
  - GENERAL PHYSICAL HEALTH DETERIORATION [None]
  - JOINT STIFFNESS [None]
  - ASTHENIA [None]
  - EMOTIONAL DISTRESS [None]
  - MOBILITY DECREASED [None]
  - SKIN HYPERTROPHY [None]
  - FIBROSIS [None]
  - INJURY [None]
  - ANXIETY [None]
  - SKIN INDURATION [None]
  - PAIN [None]
  - ANHEDONIA [None]
  - NEPHROGENIC SYSTEMIC FIBROSIS [None]
